FAERS Safety Report 12602443 (Version 1)
Quarter: 2016Q3

REPORT INFORMATION
  Report Type: Spontaneous
  Country: US (occurrence: None)
  Receive Date: 20160727
  Receipt Date: 20160727
  Transmission Date: 20161109
  Serious: Yes (Other)
  Sender: FDA-Public Use
  Company Number: None

PATIENT
  Age: 88 Year
  Sex: Female

DRUGS (1)
  1. SULFAMETHEX/TRIMETHOPR 800/160 AUROBINDO [Suspect]
     Active Substance: SULFAMETHOXAZOLE\TRIMETHOPRIM
     Indication: CYSTITIS
     Dosage: 1 BIDX7 PO
     Route: 048
     Dates: start: 20160713

REACTIONS (1)
  - Pruritus [None]

NARRATIVE: CASE EVENT DATE: 20160713
